FAERS Safety Report 8387496-8 (Version None)
Quarter: 2012Q2

REPORT INFORMATION
  Report Type: 
  Country: None (occurrence: None)
  Receive Date: 20120525
  Receipt Date: 20120521
  Transmission Date: 20120825
  Serious: Yes (Hospitalization)
  Sender: FDA-Public Use
  Company Number: PHHY2012JP039641

PATIENT
  Age: 53 Year
  Sex: Male
  Weight: 68 kg

DRUGS (9)
  1. METHOTREXATE [Concomitant]
     Indication: PROPHYLAXIS AGAINST GRAFT VERSUS HOST DISEASE
     Dosage: 10 MG/M2, UNK
  2. BUSULFAN [Concomitant]
     Dosage: 0.8 MG/KG, UNK
  3. METHOTREXATE [Concomitant]
     Dosage: 7 MG/M2, UNK
  4. MEROPENEM [Concomitant]
  5. CYTOXAN [Concomitant]
     Dosage: 60 MG/KG, UNK
  6. VANCOMYCIN [Concomitant]
  7. MICAFUNGIN [Concomitant]
  8. ACYCLOVIR [Concomitant]
  9. CYCLOSPORINE [Suspect]
     Indication: PROPHYLAXIS AGAINST GRAFT VERSUS HOST DISEASE
     Dosage: 3 MG/KG, UNK
     Route: 048

REACTIONS (7)
  - CHROMATURIA [None]
  - COMPLICATIONS OF BONE MARROW TRANSPLANT [None]
  - RENAL FAILURE ACUTE [None]
  - PYREXIA [None]
  - HAEMOLYSIS [None]
  - ANAEMIA [None]
  - HAEMOGLOBINURIA [None]
